FAERS Safety Report 10090047 (Version 1)
Quarter: 2014Q2

REPORT INFORMATION
  Report Type: Spontaneous
  Country: US (occurrence: US)
  Receive Date: 20140421
  Receipt Date: 20140421
  Transmission Date: 20141212
  Serious: No
  Sender: FDA-Public Use
  Company Number: US-009507513-1404USA011037

PATIENT
  Sex: Male

DRUGS (4)
  1. SINGULAIR [Suspect]
     Route: 048
  2. VICODIN [Concomitant]
  3. SIMPONI [Concomitant]
  4. MOBIC [Concomitant]

REACTIONS (1)
  - Drug ineffective [Unknown]
